FAERS Safety Report 9350407 (Version 1)
Quarter: 2013Q2

REPORT INFORMATION
  Report Type: Spontaneous
  Country: US (occurrence: US)
  Receive Date: 20130617
  Receipt Date: 20130617
  Transmission Date: 20140414
  Serious: Yes (Hospitalization, Disabling, Other)
  Sender: FDA-Public Use
  Company Number: US-ELI_LILLY_AND_COMPANY-US201306002007

PATIENT
  Age: 63 Year
  Sex: Female

DRUGS (22)
  1. CYMBALTA [Suspect]
     Indication: FIBROMYALGIA
     Dosage: 60 MG, BID
  2. ACETAMINOPHEN [Concomitant]
     Indication: PAIN
  3. ALBUTEROL [Concomitant]
     Indication: ASTHMA
  4. ASPIRIN [Concomitant]
     Dosage: 81 MG, QD
  5. ATORVASTATIN [Concomitant]
     Indication: BLOOD CHOLESTEROL INCREASED
     Dosage: 20 MG, QD
  6. BETAMETHASONE [Concomitant]
     Indication: SEBORRHOEIC DERMATITIS
  7. CALCITRIOL [Concomitant]
     Indication: THYROIDECTOMY
     Dosage: 0.5 MG, QD
  8. CALCIUM WITH VITAMIN D [Concomitant]
  9. CITRUCEL [Concomitant]
     Indication: CONSTIPATION
  10. EPIPEN [Concomitant]
     Indication: ARTHROPOD STING
  11. FEXOFENADINE [Concomitant]
     Indication: MULTIPLE ALLERGIES
     Dosage: 180 MG, QD
  12. FLUTICASONE [Concomitant]
     Indication: ASTHMA
     Dosage: 220 UG, BID
  13. FLUTICASONE [Concomitant]
     Dosage: 27.5 UG, EACH MORNING
  14. LAMOTRIGINE [Concomitant]
     Indication: AFFECTIVE DISORDER
     Dosage: 100 MG, QD
  15. LISINOPRIL [Concomitant]
     Dosage: 10 MG, QD
  16. LEVOTHYROXINE [Concomitant]
     Indication: HYPOTHYROIDISM
  17. MEPERIDINE [Concomitant]
     Indication: PAIN
     Dosage: 150 MG, QD
  18. METOPROLOL [Concomitant]
     Indication: HYPERTENSION
  19. MUPIROCIN [Concomitant]
     Indication: STAPHYLOCOCCAL INFECTION
  20. OMEPRAZOL [Concomitant]
     Indication: GASTROOESOPHAGEAL REFLUX DISEASE
     Dosage: 20 MG, BID
  21. TIZANIDINE [Concomitant]
     Indication: MUSCLE SPASMS
  22. TRAZODONE [Concomitant]
     Indication: INSOMNIA
     Dosage: 150 MG, QD

REACTIONS (13)
  - Drug withdrawal syndrome [Unknown]
  - Mental disorder [Unknown]
  - Emotional disorder [Unknown]
  - Exostosis [Unknown]
  - Adenoma benign [Unknown]
  - Vocal cord disorder [Unknown]
  - Tendon rupture [Unknown]
  - Off label use [Unknown]
  - Cataract [Unknown]
  - Psoriasis [Unknown]
  - Type 2 diabetes mellitus [Unknown]
  - Burns second degree [Unknown]
  - Burns second degree [Unknown]
